FAERS Safety Report 4298958-7 (Version None)
Quarter: 2004Q1

REPORT INFORMATION
  Report Type: 
  Country: None (occurrence: None)
  Receive Date: 20040217
  Receipt Date: 20040209
  Transmission Date: 20041129
  Serious: Yes (Hospitalization)
  Sender: FDA-Public Use
  Company Number: 7394

PATIENT
  Age: 57 Year
  Sex: Female

DRUGS (1)
  1. METHOTREXATE [Suspect]
     Indication: RHEUMATOID ARTHRITIS
     Dosage: 5 MG WEEKLY PO
     Route: 048
     Dates: start: 19901101, end: 20000501

REACTIONS (3)
  - HEPATIC FIBROSIS [None]
  - HEPATOSPLENOMEGALY [None]
  - VARICES OESOPHAGEAL [None]
